FAERS Safety Report 24625076 (Version 2)
Quarter: 2024Q4

REPORT INFORMATION
  Report Type: Spontaneous
  Country: FR (occurrence: FR)
  Receive Date: 20241115
  Receipt Date: 20241127
  Transmission Date: 20250115
  Serious: Yes (Life-Threatening)
  Sender: REGENERON
  Company Number: FR-BAYER-2024A161263

PATIENT
  Sex: Female

DRUGS (1)
  1. EYLEA [Suspect]
     Active Substance: AFLIBERCEPT
     Indication: Age-related macular degeneration
     Dosage: UNK, 40 MG/ML
     Route: 031
     Dates: start: 20240607, end: 20240826

REACTIONS (3)
  - Acute kidney injury [Recovering/Resolving]
  - Thrombotic microangiopathy [Recovering/Resolving]
  - Nephropathy [Unknown]

NARRATIVE: CASE EVENT DATE: 20240101
